FAERS Safety Report 7181074-4 (Version None)
Quarter: 2010Q4

REPORT INFORMATION
  Report Type: 
  Country: None (occurrence: None)
  Receive Date: 20101221
  Receipt Date: 20100416
  Transmission Date: 20110411
  Serious: Yes (Other)
  Sender: FDA-Public Use
  Company Number: US-AMGEN-QUU406736

PATIENT

DRUGS (2)
  1. ENBREL [Suspect]
     Indication: ANKYLOSING SPONDYLITIS
     Dosage: 25 MG, QWK
     Dates: start: 20050101
  2. CORTICOSTEROID NOS [Concomitant]

REACTIONS (4)
  - CONVULSION [None]
  - EYE SWELLING [None]
  - HEADACHE [None]
  - NASOPHARYNGITIS [None]
